FAERS Safety Report 16883079 (Version 2)
Quarter: 2019Q4

REPORT INFORMATION
  Report Type: Spontaneous
  Country: GB (occurrence: GB)
  Receive Date: 20191004
  Receipt Date: 20191022
  Transmission Date: 20200122
  Serious: Yes (Hospitalization, Other)
  Sender: FDA-Public Use
  Company Number: GB-SA-2019SA264360

PATIENT
  Age: 67 Year
  Sex: Female

DRUGS (10)
  1. IBANDRONIC ACID. [Concomitant]
     Active Substance: IBANDRONIC ACID
     Route: 048
  2. AMLODIPINE [Concomitant]
     Active Substance: AMLODIPINE BESYLATE
  3. OMEPRAZOLE. [Concomitant]
     Active Substance: OMEPRAZOLE
     Route: 048
  4. VENTOLIN [Concomitant]
     Active Substance: ALBUTEROL SULFATE
     Route: 048
  5. COCODAMOL [Concomitant]
     Active Substance: ACETAMINOPHEN\CODEINE PHOSPHATE
     Route: 048
  6. KEVZARA [Suspect]
     Active Substance: SARILUMAB
     Indication: RHEUMATOID ARTHRITIS
     Dosage: 200 MG
     Route: 058
     Dates: start: 20190807, end: 20190814
  7. AZITHROMYCIN ANHYDROUS. [Concomitant]
     Active Substance: AZITHROMYCIN ANHYDROUS
     Route: 048
  8. FOSTAIR [Concomitant]
     Active Substance: BECLOMETHASONE\FORMOTEROL
     Route: 048
  9. RANITIDINE. [Concomitant]
     Active Substance: RANITIDINE
     Route: 048
  10. CANDESARTAN. [Concomitant]
     Active Substance: CANDESARTAN
     Route: 048

REACTIONS (8)
  - Chills [Unknown]
  - Neutrophil count decreased [Recovering/Resolving]
  - Pyrexia [Unknown]
  - Productive cough [Unknown]
  - Bacterial disease carrier [Unknown]
  - Neutropenic sepsis [Recovered/Resolved]
  - Bronchiectasis [Unknown]
  - Hypotension [Unknown]

NARRATIVE: CASE EVENT DATE: 2019
